FAERS Safety Report 9006370 (Version 1)
Quarter: 2012Q4

REPORT INFORMATION
  Report Type: Spontaneous
  Country: DK (occurrence: None)
  Receive Date: 20121227
  Receipt Date: 20121227
  Transmission Date: 20130627
  Serious: Yes (Disabling, Other)
  Sender: FDA-Public Use
  Company Number: 2012MA014226

PATIENT
  Age: 18 Year
  Sex: Female

DRUGS (2)
  1. CITALOPRAM HYDROBROMIDE TABLETS, 10 MG (PUREPAC) [Suspect]
     Indication: DEPRESSION SUICIDAL
     Dates: start: 20120811
  2. CITALOPRAM HYDROBROMIDE [Suspect]
     Route: 048
     Dates: end: 20120822

REACTIONS (2)
  - Panic attack [None]
  - Anxiety [None]
